FAERS Safety Report 9127486 (Version 1)
Quarter: 2013Q1

REPORT INFORMATION
  Report Type: Spontaneous
  Country: US (occurrence: US)
  Receive Date: 20130228
  Receipt Date: 20130228
  Transmission Date: 20140127
  Serious: No
  Sender: FDA-Public Use
  Company Number: US-GLAXOSMITHKLINE-A0979216A

PATIENT
  Sex: Female

DRUGS (2)
  1. LAMICTAL [Suspect]
     Indication: PARTIAL SEIZURES
     Dosage: 300MG TWICE PER DAY
     Route: 048
     Dates: start: 2004
  2. UNKNOWN [Concomitant]

REACTIONS (1)
  - Exposure during pregnancy [Unknown]
